FAERS Safety Report 4688529-2 (Version None)
Quarter: 2005Q2

REPORT INFORMATION
  Report Type: 
  Country: None (occurrence: None)
  Receive Date: 20050311
  Receipt Date: 20050311
  Transmission Date: 20051028
  Serious: No
  Sender: FDA-Public Use
  Company Number: None

PATIENT
  Sex: Female

DRUGS (6)
  1. ADDERALL (GENERIC) [Suspect]
     Indication: ATTENTION DEFICIT/HYPERACTIVITY DISORDER
     Dosage: 20 MG QID
     Dates: start: 20030101
  2. WELLBUTRIN (BUPROPION) [Suspect]
     Indication: DEPRESSION
     Dosage: 350 MG DAILY
     Dates: start: 20040101
  3. TEGRETOL [Concomitant]
  4. TRAZODONE [Concomitant]
  5. AMITRIPTYLINE HCL [Concomitant]
  6. ATIVAN [Concomitant]

REACTIONS (1)
  - DRUG INEFFECTIVE [None]
